FAERS Safety Report 4680341-3 (Version None)
Quarter: 2005Q2

REPORT INFORMATION
  Report Type: 
  Country: None (occurrence: None)
  Receive Date: 20050601
  Receipt Date: 20050518
  Transmission Date: 20051028
  Serious: Yes (Other)
  Sender: FDA-Public Use
  Company Number: DSA_26456_2005

PATIENT
  Age: 15 Year
  Sex: Male

DRUGS (4)
  1. VASOTEC [Suspect]
     Indication: HYPERTENSION
     Dosage: DF PO
     Route: 048
     Dates: start: 20040101, end: 20041201
  2. VASOTEC [Suspect]
     Indication: PROTEIN URINE PRESENT
     Dosage: DF PO
     Route: 048
     Dates: start: 20040101, end: 20041201
  3. COZAAR [Suspect]
     Indication: HYPERTENSION
     Dosage: DF PO
     Route: 048
     Dates: start: 20040101, end: 20041201
  4. COZAAR [Suspect]
     Indication: PROTEIN URINE PRESENT
     Dosage: DF PO
     Route: 048
     Dates: start: 20040101, end: 20041201

REACTIONS (3)
  - CONDITION AGGRAVATED [None]
  - HYPERTENSION [None]
  - RENAL IMPAIRMENT [None]
